FAERS Safety Report 25230309 (Version 1)
Quarter: 2025Q2

REPORT INFORMATION
  Report Type: Spontaneous
  Country: DE (occurrence: DE)
  Receive Date: 20250423
  Receipt Date: 20250423
  Transmission Date: 20250717
  Serious: Yes (Congenital Anomaly)
  Sender: TEVA
  Company Number: DE-EMB-M201900703-1

PATIENT
  Sex: Female
  Weight: 3.82 kg

DRUGS (5)
  1. BUDESONIDE [Suspect]
     Active Substance: BUDESONIDE
     Indication: Sarcoidosis
     Route: 064
  2. METHYLDOPA [Suspect]
     Active Substance: METHYLDOPA
     Indication: Hypertension
     Route: 064
     Dates: start: 201812, end: 201901
  3. Nikotin [Concomitant]
     Indication: Tobacco user
     Route: 064
     Dates: start: 201811, end: 201812
  4. RAMIPRIL [Concomitant]
     Active Substance: RAMIPRIL
     Indication: Hypertension
     Route: 064
     Dates: start: 201811, end: 201812
  5. OMEPRAZOLE [Concomitant]
     Active Substance: OMEPRAZOLE
     Indication: Gastritis
     Route: 064

REACTIONS (2)
  - Kidney duplex [Not Recovered/Not Resolved]
  - Foetal exposure during pregnancy [Unknown]
